FAERS Safety Report 9647956 (Version 1)
Quarter: 2013Q4

REPORT INFORMATION
  Report Type: Spontaneous
  Country: US (occurrence: US)
  Receive Date: 20131028
  Receipt Date: 20131028
  Transmission Date: 20140711
  Serious: No
  Sender: FDA-Public Use
  Company Number: US-PFIZER INC-2013305793

PATIENT
  Age: 75 Year
  Sex: Female

DRUGS (11)
  1. CELEBREX [Suspect]
     Dosage: UNK
  2. ZOLOFT [Suspect]
     Dosage: UNK
  3. AVELOX [Suspect]
     Dosage: UNK
  4. BACLOFEN [Suspect]
     Dosage: UNK
  5. DARVOCET [Suspect]
     Dosage: UNK
  6. DEMEROL [Suspect]
     Dosage: UNK
  7. LEVAQUIN [Suspect]
     Dosage: UNK
  8. VICODIN [Suspect]
     Dosage: UNK
  9. CARAFATE [Suspect]
     Dosage: UNK
  10. FLOVENT [Suspect]
     Dosage: UNK
  11. XOPENEX [Suspect]
     Dosage: UNK

REACTIONS (1)
  - Drug hypersensitivity [Unknown]
